FAERS Safety Report 15583044 (Version 1)
Quarter: 2018Q4

REPORT INFORMATION
  Report Type: Spontaneous
  Country: JP (occurrence: JP)
  Receive Date: 20181105
  Receipt Date: 20181105
  Transmission Date: 20190205
  Serious: Yes (Other)
  Sender: FDA-Public Use
  Company Number: JP-PFIZER INC-2018443228

PATIENT

DRUGS (2)
  1. PRODIF [Suspect]
     Active Substance: FOSFLUCONAZOLE
     Indication: BACTERAEMIA
     Dosage: UNK
     Route: 042
  2. DIFLUCAN [Suspect]
     Active Substance: FLUCONAZOLE
     Indication: FUNGAL INFECTION
     Dosage: UNK
     Route: 048

REACTIONS (1)
  - Endophthalmitis [Unknown]
